FAERS Safety Report 23486993 (Version 3)
Quarter: 2024Q3

REPORT INFORMATION
  Report Type: Spontaneous
  Country: JP (occurrence: JP)
  Receive Date: 20240206
  Receipt Date: 20240725
  Transmission Date: 20241016
  Serious: Yes (Death, Hospitalization, Other)
  Sender: EXELIXIS
  Company Number: JP-TAKEDA-2024TJP001727

PATIENT
  Age: 56 Year
  Sex: Male
  Weight: 58.4 kg

DRUGS (9)
  1. CABOMETYX [Suspect]
     Active Substance: CABOZANTINIB S-MALATE
     Indication: Renal cancer
     Dosage: 40 MG, QD
     Route: 048
     Dates: start: 20240104, end: 20240126
  2. IPILIMUMAB [Suspect]
     Active Substance: IPILIMUMAB
     Indication: Renal cancer
     Dosage: 61.1 MILLIGRAM, Q3WEEKS
     Route: 042
     Dates: start: 20231013, end: 20231117
  3. NIVOLUMAB [Suspect]
     Active Substance: NIVOLUMAB
     Indication: Renal cancer
     Dosage: 240 MILLIGRAM, Q3WEEKS
     Route: 042
     Dates: start: 20231013, end: 20231117
  4. HYDROMORPHONE HYDROCHLORIDE [Concomitant]
     Active Substance: HYDROMORPHONE HYDROCHLORIDE
     Dosage: 4 MILLIGRAM, QD
     Route: 048
     Dates: start: 20231016
  5. HYDROMORPHONE HYDROCHLORIDE [Concomitant]
     Active Substance: HYDROMORPHONE HYDROCHLORIDE
     Dosage: 1 MILLIGRAM
     Route: 048
     Dates: start: 20231016
  6. ETODOLAC [Concomitant]
     Active Substance: ETODOLAC
     Dosage: 200 MILLIGRAM, BID
     Route: 048
     Dates: start: 20231016
  7. CALONAL [Concomitant]
     Active Substance: ACETAMINOPHEN
     Dosage: 500 MILLIGRAM, QID
     Route: 048
     Dates: start: 20231016
  8. SYMPROIC [Concomitant]
     Active Substance: NALDEMEDINE
     Dosage: 0.2 MILLIGRAM, QD
     Route: 048
     Dates: start: 20231016
  9. NOVAMIN [Concomitant]
     Dosage: 5 MILLIGRAM, TID
     Route: 048
     Dates: start: 20231016

REACTIONS (5)
  - Sepsis [Fatal]
  - Pulmonary toxicity [Recovering/Resolving]
  - Renal cancer [Unknown]
  - Proteinuria [Unknown]
  - Hypoalbuminaemia [Unknown]

NARRATIVE: CASE EVENT DATE: 20240129
